FAERS Safety Report 7990834-9 (Version None)
Quarter: 2011Q4

REPORT INFORMATION
  Report Type: 
  Country: None (occurrence: None)
  Receive Date: 20111219
  Receipt Date: 20111212
  Transmission Date: 20120403
  Serious: Yes (Hospitalization, Other)
  Sender: FDA-Public Use
  Company Number: CA-UCBSA-039847

PATIENT
  Age: 57 Year
  Sex: Female
  Weight: 66.81 kg

DRUGS (16)
  1. MELOXICAM [Concomitant]
     Route: 048
  2. ALDACTONE [Concomitant]
     Route: 048
  3. RABEPRAZOLE SODIUM [Concomitant]
     Route: 048
  4. CALCIUM [Concomitant]
     Route: 048
  5. RAMIPRIL [Concomitant]
     Route: 048
  6. PREDNISONE TAB [Concomitant]
     Indication: RHEUMATOID ARTHRITIS
     Route: 048
     Dates: start: 19780101
  7. PLAQUENIL [Concomitant]
     Indication: RHEUMATOID ARTHRITIS
     Route: 048
     Dates: start: 19880101
  8. LIPITOR [Concomitant]
     Route: 048
  9. VITAMIN D [Concomitant]
     Route: 048
  10. VITAMIN C [Concomitant]
     Route: 048
  11. GABAPENTIN [Suspect]
     Dates: start: 20110816
  12. ARAVA [Concomitant]
     Indication: RHEUMATOID ARTHRITIS
     Route: 048
     Dates: start: 20080101
  13. FOLIC ACID [Concomitant]
     Route: 048
  14. CIMZIA [Suspect]
     Indication: RHEUMATOID ARTHRITIS
     Route: 058
     Dates: start: 20110714
  15. CIMZIA [Suspect]
     Dosage: 400 MG ON WEEKS 0, 2 AND 4
     Route: 058
     Dates: start: 20110602, end: 20110630
  16. SULFASALAZINE [Concomitant]
     Indication: RHEUMATOID ARTHRITIS
     Route: 048
     Dates: start: 20040101

REACTIONS (5)
  - NAUSEA [None]
  - PANCREATITIS [None]
  - DIZZINESS [None]
  - ARTHRALGIA [None]
  - HERPES ZOSTER [None]
